FAERS Safety Report 18373316 (Version 2)
Quarter: 2020Q4

REPORT INFORMATION
  Report Type: Report from Study
  Country: US (occurrence: US)
  Receive Date: 20201012
  Receipt Date: 20201029
  Transmission Date: 20210114
  Serious: Yes (Death, Hospitalization, Other)
  Sender: FDA-Public Use
  Company Number: US-BRISTOL-MYERS SQUIBB COMPANY-BMS-2020-084077

PATIENT
  Age: 56 Year
  Sex: Male
  Weight: 102.06 kg

DRUGS (6)
  1. PREDNISONE. [Suspect]
     Active Substance: PREDNISONE
     Indication: COLITIS
     Dosage: UNK
     Route: 065
  2. INFLIXIMAB [Suspect]
     Active Substance: INFLIXIMAB
     Indication: COLITIS
     Dosage: UNK
     Route: 065
  3. NIVOLUMAB [Suspect]
     Active Substance: NIVOLUMAB
     Indication: MALIGNANT MELANOMA
     Dosage: 117.9 MILLIGRAM
     Route: 042
     Dates: start: 20200522, end: 20200813
  4. BINIMETINIB [Suspect]
     Active Substance: BINIMETINIB
     Indication: COLITIS
     Dosage: UNK
     Route: 065
  5. ATOVAQUONE. [Concomitant]
     Active Substance: ATOVAQUONE
     Indication: COLITIS
     Route: 065
  6. IPILIMUMAB [Suspect]
     Active Substance: IPILIMUMAB
     Indication: MALIGNANT MELANOMA
     Dosage: 354 MILLIGRAM
     Route: 042
     Dates: start: 20200522, end: 20200813

REACTIONS (4)
  - Disseminated intravascular coagulation [Fatal]
  - Sepsis [Fatal]
  - Cardiac arrest [Unknown]
  - Colitis [Unknown]

NARRATIVE: CASE EVENT DATE: 20200813
